FAERS Safety Report 6177312-7 (Version None)
Quarter: 2009Q2

REPORT INFORMATION
  Report Type: 
  Country: None (occurrence: None)
  Receive Date: 20090430
  Receipt Date: 20090430
  Transmission Date: 20091009
  Serious: Yes (Disabling)
  Sender: FDA-Public Use
  Company Number: None

PATIENT
  Sex: Male
  Weight: 96.2 kg

DRUGS (1)
  1. TAXOL [Suspect]
     Dates: start: 20090107

REACTIONS (4)
  - ARTERIOSCLEROSIS CORONARY ARTERY [None]
  - CHEST PAIN [None]
  - CORONARY ARTERY STENOSIS [None]
  - MEDICAL DEVICE COMPLICATION [None]
